FAERS Safety Report 6920946-X (Version None)
Quarter: 2010Q3

REPORT INFORMATION
  Report Type: 
  Country: None (occurrence: None)
  Receive Date: 20100812
  Receipt Date: 20100802
  Transmission Date: 20110219
  Serious: Yes (Other)
  Sender: FDA-Public Use
  Company Number: US-PFIZER INC-2010056903

PATIENT
  Sex: Female
  Weight: 78.91 kg

DRUGS (13)
  1. CELEBREX [Suspect]
     Indication: BACK PAIN
     Dosage: UNK
  2. EFFEXOR [Suspect]
     Dosage: UNK
     Dates: start: 20070101, end: 20070101
  3. LEXAPRO [Suspect]
     Indication: DEPRESSION
     Dosage: 20 MG, 1X/DAY
     Dates: start: 20090901
  4. CYMBALTA [Suspect]
     Dosage: UNK
     Dates: start: 20090801, end: 20090801
  5. SEROQUEL [Suspect]
     Indication: SLEEP DISORDER
     Dosage: 600 MG, 1X/DAY
     Dates: start: 20090901
  6. SEROQUEL [Suspect]
     Indication: AFFECT LABILITY
  7. TEGRETOL [Concomitant]
     Indication: CONVULSION
     Dosage: UNK
  8. LOPRESSOR [Concomitant]
     Indication: HYPERTENSION
     Dosage: 50 MG, 2X/DAY
  9. NEURONTIN [Concomitant]
     Indication: BACK PAIN
     Dosage: 300 MG, 3X/DAY
  10. GLUCOPHAGE [Concomitant]
     Indication: DIABETES MELLITUS
     Dosage: 850 MG, 2X/DAY
  11. PRILOSEC [Concomitant]
     Indication: ULCER
     Dosage: 20 MG, 1X/DAY
  12. DICHLORALPHENAZONE/ISOMETHEPTENE MUCATE/PARACETAMOL [Concomitant]
     Indication: MIGRAINE
     Dosage: UNK
  13. LORCET-HD [Concomitant]
     Indication: BACK PAIN
     Dosage: 10MG/650MG

REACTIONS (9)
  - ABDOMINAL PAIN UPPER [None]
  - ANXIETY [None]
  - DRUG INEFFECTIVE [None]
  - INSOMNIA [None]
  - MENISCUS LESION [None]
  - NAUSEA [None]
  - PANIC ATTACK [None]
  - THORACIC VERTEBRAL FRACTURE [None]
  - THYROID DISORDER [None]
